FAERS Safety Report 5116007-5 (Version None)
Quarter: 2006Q3

REPORT INFORMATION
  Report Type: 
  Country: None (occurrence: None)
  Receive Date: 20060927
  Receipt Date: 20060209
  Transmission Date: 20061208
  Serious: Yes (Other)
  Sender: FDA-Public Use
  Company Number: US-BRISTOL-MYERS SQUIBB COMPANY-13278718

PATIENT
  Age: 20 Year
  Sex: Female

DRUGS (1)
  1. DEFINITY [Suspect]
     Indication: STRESS ECHOCARDIOGRAM
     Route: 040
     Dates: start: 20060209, end: 20060209

REACTIONS (2)
  - DYSPNOEA [None]
  - SINUS TACHYCARDIA [None]
